FAERS Safety Report 23300092 (Version 1)
Quarter: 2023Q4

REPORT INFORMATION
  Report Type: Spontaneous
  Country: US (occurrence: US)
  Receive Date: 20231215
  Receipt Date: 20231215
  Transmission Date: 20240109
  Serious: Yes (Hospitalization)
  Sender: FDA-Public Use
  Company Number: US-STRIDES ARCOLAB LIMITED-2023SP016505

PATIENT
  Age: 42 Year
  Sex: Female
  Weight: 64.2 kg

DRUGS (66)
  1. OXYCODONE [Suspect]
     Active Substance: OXYCODONE
     Indication: Pain
     Dosage: UNK
     Route: 065
  2. GABAPENTIN [Suspect]
     Active Substance: GABAPENTIN
     Indication: Pain
     Dosage: 2400 MILLIGRAM, DAY 1
     Route: 048
  3. GABAPENTIN [Suspect]
     Active Substance: GABAPENTIN
     Dosage: 1600 MILLIGRAM, DAY 3
     Route: 048
  4. GABAPENTIN [Suspect]
     Active Substance: GABAPENTIN
     Dosage: 1800 MILLIGRAM, DAY 4
     Route: 048
  5. GABAPENTIN [Suspect]
     Active Substance: GABAPENTIN
     Dosage: 1800 MILLIGRAM, DAY 10
     Route: 048
  6. GABAPENTIN [Suspect]
     Active Substance: GABAPENTIN
     Dosage: 1200 MILLIGRAM, DAY 12
     Route: 048
  7. GABAPENTIN [Suspect]
     Active Substance: GABAPENTIN
     Dosage: 1800 MILLIGRAM, DAY 16
     Route: 048
  8. GABAPENTIN [Suspect]
     Active Substance: GABAPENTIN
     Dosage: 1800 MILLIGRAM, DAY 20
     Route: 048
  9. GABAPENTIN [Suspect]
     Active Substance: GABAPENTIN
     Dosage: 1800 MILLIGRAM, DAY 25
     Route: 048
  10. GABAPENTIN [Suspect]
     Active Substance: GABAPENTIN
     Dosage: 1200 MILLIGRAM POD 1
     Route: 048
  11. GABAPENTIN [Suspect]
     Active Substance: GABAPENTIN
     Dosage: 1800 MILLIGRAM ON POD 2
     Route: 048
  12. GABAPENTIN [Suspect]
     Active Substance: GABAPENTIN
     Dosage: 1200 MILLIGRAM ON POD 3
     Route: 048
  13. MORPHINE SULFATE [Suspect]
     Active Substance: MORPHINE SULFATE
     Indication: Pain
     Dosage: 492 MILLIEQUIVALENT ON DAY 1, TOTAL MORPHINE MILLIEQUIVALENTS
     Route: 048
  14. MORPHINE SULFATE [Suspect]
     Active Substance: MORPHINE SULFATE
     Dosage: 530 MILLIEQUIVALENT ON DAY 3; TOTAL MORPHINE MILLIEQUIVALENTS
     Route: 048
  15. MORPHINE SULFATE [Suspect]
     Active Substance: MORPHINE SULFATE
     Dosage: 380 MILLIEQUIVALENT ON DAY 4; TOTAL MORPHINE MILLIEQUIVALENTS
     Route: 048
  16. MORPHINE SULFATE [Suspect]
     Active Substance: MORPHINE SULFATE
     Dosage: 314 MILLIEQUIVALENT ON DAY 10; TOTAL MORPHINE MILLIEQUIVALENTS
     Route: 048
  17. MORPHINE SULFATE [Suspect]
     Active Substance: MORPHINE SULFATE
     Dosage: 204 MILLIEQUIVALENT ON DAY 12; TOTAL MORPHINE MILLIEQUIVALENTS
     Route: 048
  18. MORPHINE SULFATE [Suspect]
     Active Substance: MORPHINE SULFATE
     Dosage: 6 MILLIEQUIVALENT ON DAY 16; TOTAL MORPHINE MILLIEQUIVALENTS
     Route: 048
  19. MORPHINE SULFATE [Suspect]
     Active Substance: MORPHINE SULFATE
     Dosage: 42 MILLIEQUIVALENT ON DAY 20; TOTAL MORPHINE MILLIEQUIVALENTS
     Route: 048
  20. MORPHINE SULFATE [Suspect]
     Active Substance: MORPHINE SULFATE
     Dosage: 24 MILLIEQUIVALENT, ON DAY 25; TOTAL MORPHINE MILLIEQUIVALENTS
     Route: 048
  21. MORPHINE SULFATE [Suspect]
     Active Substance: MORPHINE SULFATE
     Dosage: 24 MILLIEQUIVALENT, POD 1; TOTAL MORPHINE MILLIEQUIVALENTS
     Route: 048
  22. MORPHINE SULFATE [Suspect]
     Active Substance: MORPHINE SULFATE
     Dosage: 3 MILLIEQUIVALENT, POD 2; TOTAL MORPHINE MILLIEQUIVALENTS
     Route: 048
  23. MORPHINE SULFATE [Suspect]
     Active Substance: MORPHINE SULFATE
     Dosage: 13 MILLIEQUIVALENT,POD 3; TOTAL MORPHINE MILLIEQUIVALENTS
     Route: 048
  24. MORPHINE SULFATE [Suspect]
     Active Substance: MORPHINE SULFATE
     Dosage: 492 MILLIEQUIVALENT, DAY 1; TOTAL MORPHINE MILLIEQUIVALENTS
     Route: 037
  25. MORPHINE SULFATE [Suspect]
     Active Substance: MORPHINE SULFATE
     Dosage: 530 MILLIEQUIVALENT, DAY 3; TOTAL MORPHINE MILLIEQUIVALENTS
     Route: 037
  26. MORPHINE SULFATE [Suspect]
     Active Substance: MORPHINE SULFATE
     Dosage: 380 MILLIEQUIVALENT DAY 4,TOTAL MORPHINE MILLIEQUIVALENTS
     Route: 037
  27. MORPHINE SULFATE [Suspect]
     Active Substance: MORPHINE SULFATE
     Dosage: 314 MILLIEQUIVALENT,DAY 10; TOTAL MORPHINE MILLIEQUIVALENTS
     Route: 037
  28. MORPHINE SULFATE [Suspect]
     Active Substance: MORPHINE SULFATE
     Dosage: 204 MILLIEQUIVALENT,DAY 12; TOTAL MORPHINE MILLIEQUIVALENTS
     Route: 037
  29. MORPHINE SULFATE [Suspect]
     Active Substance: MORPHINE SULFATE
     Dosage: 6 MILLIEQUIVALENTS, DAY 16; TOTAL MORPHINE MILLIEQUIVALENTS
     Route: 037
  30. MORPHINE SULFATE [Suspect]
     Active Substance: MORPHINE SULFATE
     Dosage: 42 MILLIEQUIVALENT, DAY 20; TOTAL MORPHINE MILLIEQUIVALENTS
     Route: 037
  31. MORPHINE SULFATE [Suspect]
     Active Substance: MORPHINE SULFATE
     Dosage: 24 MILLIEQUIVALENT,DAY 25; TOTAL MORPHINE MILLIEQUIVALENTS
     Route: 037
  32. MORPHINE SULFATE [Suspect]
     Active Substance: MORPHINE SULFATE
     Dosage: 24 MILLIEQUIVALENT,~POD 1; TOTAL MORPHINE MILLIEQUIVALENT
     Route: 037
  33. MORPHINE SULFATE [Suspect]
     Active Substance: MORPHINE SULFATE
     Dosage: 3 MILLIEQUIVALENT,POD 2; TOTAL MORPHINE MILLIEQUIVALENTS
     Route: 037
  34. MORPHINE SULFATE [Suspect]
     Active Substance: MORPHINE SULFATE
     Dosage: 13 MILLIEQUIVALENT, POD 3; TOTAL MORPHINE MILLIEQUIVALENTS
     Route: 037
  35. BACLOFEN [Suspect]
     Active Substance: BACLOFEN
     Indication: Pain
     Dosage: 15 MILLIGRAM ON DAY 1
     Route: 048
  36. BACLOFEN [Suspect]
     Active Substance: BACLOFEN
     Dosage: 10 MILLIGRAM ON DAY 3
     Route: 048
  37. BACLOFEN [Suspect]
     Active Substance: BACLOFEN
     Dosage: 15 MILLIGRAM ON DAY 4
     Route: 048
  38. DOXORUBICIN [Suspect]
     Active Substance: DOXORUBICIN
     Indication: Anticoagulant therapy
     Dosage: UNK
     Route: 065
  39. METHADONE [Suspect]
     Active Substance: METHADONE HYDROCHLORIDE
     Indication: Pain
     Dosage: 10 MILLIGRAM DAY 1
     Route: 048
  40. METHADONE [Suspect]
     Active Substance: METHADONE HYDROCHLORIDE
     Dosage: 20 MILLIGRAM, DAY 3
     Route: 048
  41. METHADONE [Suspect]
     Active Substance: METHADONE HYDROCHLORIDE
     Dosage: 40 MILLIGRAM, DAY 4
     Route: 048
  42. METHADONE [Suspect]
     Active Substance: METHADONE HYDROCHLORIDE
     Dosage: 50 MILLIGRAM DAY 10
     Route: 048
  43. METHADONE [Suspect]
     Active Substance: METHADONE HYDROCHLORIDE
     Dosage: 30 MILLIGRAM DAY 12
     Route: 048
  44. METHADONE [Suspect]
     Active Substance: METHADONE HYDROCHLORIDE
     Dosage: 30 MILLIGRAM DAY 16
     Route: 048
  45. METHADONE [Suspect]
     Active Substance: METHADONE HYDROCHLORIDE
     Dosage: 10 MILLIGRAM, POD 1
     Route: 048
  46. METHADONE [Suspect]
     Active Substance: METHADONE HYDROCHLORIDE
     Dosage: 5 MILLIGRAM, POD 2
     Route: 048
  47. METHADONE [Suspect]
     Active Substance: METHADONE HYDROCHLORIDE
     Dosage: 20 MILLIGRAM ON DAY 25
     Route: 042
  48. METHADONE [Suspect]
     Active Substance: METHADONE HYDROCHLORIDE
     Dosage: 10 MILLIGRAM, POD 1
     Route: 042
  49. HYDROMORPHONE [Suspect]
     Active Substance: HYDROMORPHONE
     Indication: Pain
     Dosage: UNK
     Route: 037
  50. BUPIVACAINE [Suspect]
     Active Substance: BUPIVACAINE
     Indication: Pain
     Dosage: 4 MILLIGRAM ON DAY 1
     Route: 037
  51. BUPIVACAINE [Suspect]
     Active Substance: BUPIVACAINE
     Dosage: 4 MILLIGRAM ON DAY 3
     Route: 037
  52. BUPIVACAINE [Suspect]
     Active Substance: BUPIVACAINE
     Dosage: 4 MILLIGRAM ON DAY 4
     Route: 037
  53. BUPIVACAINE [Suspect]
     Active Substance: BUPIVACAINE
     Dosage: 4 MILLIGRAM ON DAY 10
     Route: 037
  54. BUPIVACAINE [Suspect]
     Active Substance: BUPIVACAINE
     Dosage: 4 MILLIGRAM ON DAY 12
     Route: 037
  55. BUPIVACAINE [Suspect]
     Active Substance: BUPIVACAINE
     Dosage: 4 MILLIGRAM ON DAY 16
     Route: 037
  56. BUPIVACAINE [Suspect]
     Active Substance: BUPIVACAINE
     Dosage: 4 MILLIGRAM ON DAY 20
     Route: 037
  57. BUPIVACAINE [Suspect]
     Active Substance: BUPIVACAINE
     Dosage: 4 MILLIGRAM ON DAY 25
     Route: 037
  58. BUPIVACAINE [Suspect]
     Active Substance: BUPIVACAINE
     Dosage: 2 MILLIGRAM ON POD 1
     Route: 037
  59. BUPIVACAINE [Suspect]
     Active Substance: BUPIVACAINE
     Dosage: 1 MILLIGRAM, ON POD 2
     Route: 037
  60. BUPIVACAINE [Suspect]
     Active Substance: BUPIVACAINE
     Dosage: 1 MILLIGRAM ON POD 3
     Route: 037
  61. TYLENOL [Suspect]
     Active Substance: ACETAMINOPHEN
     Indication: Pain
     Dosage: 500 MILLIGRAM ON DAY 20
     Route: 048
  62. TYLENOL [Suspect]
     Active Substance: ACETAMINOPHEN
     Dosage: 500 MILLIGRAM ON POD 3
     Route: 048
  63. OLANZAPINE [Concomitant]
     Active Substance: OLANZAPINE
     Indication: Depression
     Dosage: UNK
     Route: 065
  64. ZINECARD [Concomitant]
     Active Substance: DEXRAZOXANE HYDROCHLORIDE
     Indication: Anticoagulant therapy
     Dosage: UNK
     Route: 065
  65. SERTRALINE [Concomitant]
     Active Substance: SERTRALINE HYDROCHLORIDE
     Indication: Depression
     Dosage: UNK
     Route: 065
  66. KETAMINE HYDROCHLORIDE [Concomitant]
     Active Substance: KETAMINE HYDROCHLORIDE
     Indication: Product used for unknown indication
     Dosage: UNK
     Route: 065

REACTIONS (3)
  - Drug ineffective [Unknown]
  - Lethargy [Unknown]
  - Off label use [Unknown]
